FAERS Safety Report 14337118 (Version 1)
Quarter: 2017Q4

REPORT INFORMATION
  Report Type: Report from Study
  Country: CA (occurrence: CA)
  Receive Date: 20171229
  Receipt Date: 20171229
  Transmission Date: 20180321
  Serious: Yes (Hospitalization, Other)
  Sender: FDA-Public Use
  Company Number: CA-JNJFOC-20170522914

PATIENT
  Age: 50 Year
  Sex: Female

DRUGS (1)
  1. STELARA [Suspect]
     Active Substance: USTEKINUMAB
     Indication: PSORIASIS
     Route: 058
     Dates: start: 20121113, end: 20170707

REACTIONS (5)
  - Cardiac infection [Unknown]
  - Necrotising fasciitis [Unknown]
  - Cardiac valve disease [Recovering/Resolving]
  - Sepsis [Unknown]
  - Thrombosis [Unknown]

NARRATIVE: CASE EVENT DATE: 20170417
